FAERS Safety Report 8980917 (Version 1)
Quarter: 2012Q4

REPORT INFORMATION
  Report Type: 
  Country: US (occurrence: US)
  Receive Date: 20121221
  Receipt Date: 20121221
  Transmission Date: 20130627
  Serious: Yes (Other)
  Sender: FDA-Public Use
  Company Number: US-TARO-2012P1067015

PATIENT
  Sex: Female

DRUGS (3)
  1. WARFARIN SODIUM [Suspect]
     Indication: PROPHYLAXIS
     Route: 048
     Dates: start: 20121112
  2. WARFARIN SODIUM [Suspect]
     Indication: PROPHYLAXIS
     Route: 048
     Dates: start: 20121112
  3. CRESTOR [Concomitant]

REACTIONS (11)
  - Thirst [Not Recovered/Not Resolved]
  - Dehydration [Unknown]
  - Fatigue [Not Recovered/Not Resolved]
  - Dyspnoea [Not Recovered/Not Resolved]
  - Swollen tongue [Not Recovered/Not Resolved]
  - Dry mouth [Not Recovered/Not Resolved]
  - Chills [Not Recovered/Not Resolved]
  - Migraine [Not Recovered/Not Resolved]
  - Formication [Recovered/Resolved]
  - Oedema mouth [Not Recovered/Not Resolved]
  - Blood sodium decreased [Recovering/Resolving]
